FAERS Safety Report 10192504 (Version 2)
Quarter: 2014Q2

REPORT INFORMATION
  Report Type: Report from Study
  Country: FR (occurrence: FR)
  Receive Date: 20140523
  Receipt Date: 20140617
  Transmission Date: 20141212
  Serious: Yes (Hospitalization)
  Sender: FDA-Public Use
  Company Number: FR-AMGEN-FRACT2014037610

PATIENT
  Age: 70 Year
  Sex: Female
  Weight: 67 kg

DRUGS (7)
  1. DENOSUMAB [Suspect]
     Indication: BREAST CANCER
     Dosage: UNK
     Route: 058
     Dates: start: 20110916, end: 20140228
  2. POLARAMINE [Concomitant]
     Dosage: 2 MG, UNK
     Route: 048
     Dates: start: 20120223, end: 201202
  3. OMEPRAZOLE [Concomitant]
     Dosage: 1 UNK, UNK
     Route: 048
     Dates: start: 20121009
  4. CODEINE W/PARACETAMOL [Concomitant]
     Dosage: 30 MG + 500 MG, UNK
     Route: 048
     Dates: start: 20121009
  5. TRAMADOL [Concomitant]
     Dosage: 50 MG, UNK
     Route: 048
     Dates: start: 20121113
  6. CALCIUM [Concomitant]
     Dosage: 500 MG, UNK
     Route: 048
     Dates: start: 20140110
  7. VITAMIN D                          /00107901/ [Concomitant]
     Dosage: 400 IU, UNK
     Route: 048
     Dates: start: 20140110

REACTIONS (1)
  - Congestive cardiomyopathy [Recovered/Resolved]
